FAERS Safety Report 10534121 (Version 1)
Quarter: 2014Q4

REPORT INFORMATION
  Report Type: Spontaneous
  Country: US (occurrence: None)
  Receive Date: 20141021
  Receipt Date: 20141021
  Transmission Date: 20150529
  Serious: Yes (Other)
  Sender: FDA-Public Use
  Company Number: None

PATIENT
  Age: 6 Decade
  Sex: Female

DRUGS (1)
  1. KEFLEX [Suspect]
     Active Substance: CEPHALEXIN

REACTIONS (4)
  - Burns second degree [None]
  - Burns first degree [None]
  - Hypersensitivity [None]
  - Feeling hot [None]

NARRATIVE: CASE EVENT DATE: 20140820
